FAERS Safety Report 6451849-5 (Version None)
Quarter: 2009Q4

REPORT INFORMATION
  Report Type: 
  Country: None (occurrence: None)
  Receive Date: 20091123
  Receipt Date: 20091110
  Transmission Date: 20100525
  Serious: Yes (Other)
  Sender: FDA-Public Use
  Company Number: FR-ELI_LILLY_AND_COMPANY-FR200911002381

PATIENT
  Age: 60 Year
  Sex: Female

DRUGS (6)
  1. ZYPREXA [Suspect]
     Dosage: 10 MG, 2/D
     Route: 048
  2. STILNOX [Concomitant]
     Dosage: 10 MG, DAILY (1/D)
     Route: 048
  3. SERESTA [Concomitant]
     Dosage: 10 MG, DAILY (1/D)
     Route: 048
  4. LEPTICUR [Concomitant]
     Dosage: 10 MG, 2/D
  5. DEPAMIDE [Concomitant]
     Dosage: 300 MG, 2/D
     Route: 065
  6. LEVOTHYROXINE SODIUM [Concomitant]
     Dosage: 100 UG, DAILY (1/D)

REACTIONS (1)
  - DRUG DEPENDENCE [None]
